FAERS Safety Report 5418245-0 (Version None)
Quarter: 2007Q3

REPORT INFORMATION
  Report Type: 
  Country: None (occurrence: None)
  Receive Date: 20070817
  Receipt Date: 20070813
  Transmission Date: 20080115
  Serious: Yes (Hospitalization)
  Sender: FDA-Public Use
  Company Number: A0669788A

PATIENT
  Age: 83 Year
  Sex: Male

DRUGS (12)
  1. AVODART [Suspect]
     Dosage: 5MG PER DAY
     Route: 048
     Dates: start: 20070716
  2. FLOMAX [Concomitant]
  3. GLIPIZIDE [Concomitant]
  4. SIMVASTATIN [Concomitant]
  5. ALLOPURINOL [Concomitant]
  6. NIACIN [Concomitant]
  7. METOPROLOL SUCCINATE [Concomitant]
  8. ISOSORBIDE MONONITRATE [Concomitant]
  9. DIGOXIN [Concomitant]
  10. LISINOPRIL [Concomitant]
  11. METOCLOPRAMIDE [Concomitant]
  12. NITROGLYCERIN [Concomitant]

REACTIONS (1)
  - BLOOD GLUCOSE INCREASED [None]
